FAERS Safety Report 11022676 (Version 5)
Quarter: 2015Q3

REPORT INFORMATION
  Report Type: Spontaneous
  Country: US (occurrence: US)
  Receive Date: 20150413
  Receipt Date: 20150902
  Transmission Date: 20151125
  Serious: No
  Sender: FDA-Public Use
  Company Number: US-ELI_LILLY_AND_COMPANY-US201503005741

PATIENT
  Age: 59 Year
  Sex: Female
  Weight: 48.98 kg

DRUGS (17)
  1. ADCIRCA [Interacting]
     Active Substance: TADALAFIL
     Indication: PULMONARY ARTERIAL HYPERTENSION
     Dosage: 20 MG, BID
     Route: 048
     Dates: start: 20150121, end: 20150320
  2. ADCIRCA [Interacting]
     Active Substance: TADALAFIL
     Dosage: 20 MG, BID
     Dates: start: 20150410, end: 20150611
  3. REVATIO [Concomitant]
     Active Substance: SILDENAFIL CITRATE
  4. XANAX [Concomitant]
     Active Substance: ALPRAZOLAM
     Dosage: UNK, UNKNOWN
     Route: 065
  5. DIFLUCAN [Interacting]
     Active Substance: FLUCONAZOLE
     Indication: PRODUCT USED FOR UNKNOWN INDICATION
     Dosage: UNK, UNKNOWN
     Route: 065
  6. LETAIRIS [Concomitant]
     Active Substance: AMBRISENTAN
     Dosage: 5 MG, QD
     Route: 048
  7. LOMOTIL [Concomitant]
     Active Substance: ATROPINE SULFATE\DIPHENOXYLATE HYDROCHLORIDE
  8. ZOLPIDEM [Concomitant]
     Active Substance: ZOLPIDEM\ZOLPIDEM TARTRATE
     Dosage: 10 MG, UNK
  9. CRESTOR [Concomitant]
     Active Substance: ROSUVASTATIN CALCIUM
  10. NEFAZODONE [Suspect]
     Active Substance: NEFAZODONE
     Indication: DEPRESSION
     Dosage: 250 MG, QD
     Route: 048
     Dates: start: 1990
  11. CLOTRIMAZOLE. [Interacting]
     Active Substance: CLOTRIMAZOLE
     Indication: PRODUCT USED FOR UNKNOWN INDICATION
     Dosage: UNK, UNKNOWN
     Route: 065
  12. PROMETHAZINE [Suspect]
     Active Substance: PROMETHAZINE\PROMETHAZINE HYDROCHLORIDE
     Indication: PRODUCT USED FOR UNKNOWN INDICATION
     Route: 065
  13. FUROSEMIDE. [Concomitant]
     Active Substance: FUROSEMIDE
     Dosage: 20 MG, UNK
  14. RANITIDINE [Concomitant]
     Active Substance: RANITIDINE\RANITIDINE HYDROCHLORIDE
     Dosage: 150 MG, UNK
  15. OXYCODONE [Concomitant]
     Active Substance: OXYCODONE
     Dosage: 10 MG, UNK
  16. ADCIRCA [Interacting]
     Active Substance: TADALAFIL
     Dosage: 20 MG, QD
     Route: 048
     Dates: start: 20150320
  17. TIMOPTIC [Concomitant]
     Active Substance: TIMOLOL MALEATE

REACTIONS (15)
  - Gastroenteritis viral [Unknown]
  - Dyspnoea [Recovered/Resolved]
  - Vomiting [Recovered/Resolved]
  - Nausea [Unknown]
  - Panic attack [Unknown]
  - Weight decreased [Unknown]
  - Fistula [Unknown]
  - Candida infection [Unknown]
  - Tongue haemorrhage [Unknown]
  - Drug interaction [Unknown]
  - Dizziness [Unknown]
  - Diarrhoea [Unknown]
  - Serum serotonin decreased [Unknown]
  - Escherichia infection [Unknown]
  - Malaise [Unknown]

NARRATIVE: CASE EVENT DATE: 201503
